FAERS Safety Report 6293702-6 (Version None)
Quarter: 2009Q3

REPORT INFORMATION
  Report Type: 
  Country: None (occurrence: None)
  Receive Date: 20090730
  Receipt Date: 20090715
  Transmission Date: 20100115
  Serious: Yes (Life-Threatening, Hospitalization)
  Sender: FDA-Public Use
  Company Number: 2009BM000141

PATIENT
  Age: 7 Year
  Sex: Female
  Weight: 16.3 kg

DRUGS (6)
  1. NAGLAZYME [Suspect]
     Indication: MUCOPOLYSACCHARIDOSIS IV
     Dosage: 4 VIALS;QS;IVDRP; VIALS:QW;IVDRP
     Route: 042
     Dates: start: 20090507, end: 20090601
  2. NAGLAZYME [Suspect]
     Indication: MUCOPOLYSACCHARIDOSIS IV
     Dosage: 4 VIALS;QS;IVDRP; VIALS:QW;IVDRP
     Route: 042
     Dates: start: 20090717
  3. ZYRTEC (CON.) [Concomitant]
  4. PARACETAMOL (CON.) [Concomitant]
  5. ZYRTEC (CON.) [Concomitant]
  6. PARACETAMOL (CON.) [Concomitant]

REACTIONS (4)
  - INFLUENZA [None]
  - OBSTRUCTIVE AIRWAYS DISORDER [None]
  - PNEUMONIA [None]
  - PULMONARY FUNCTION TEST ABNORMAL [None]
